FAERS Safety Report 10201624 (Version 1)
Quarter: 2014Q2

REPORT INFORMATION
  Report Type: Spontaneous
  Country: US (occurrence: US)
  Receive Date: 20140528
  Receipt Date: 20140528
  Transmission Date: 20141212
  Serious: Yes (Life-Threatening, Hospitalization)
  Sender: FDA-Public Use
  Company Number: US-ABBVIE-14P-163-1241485-00

PATIENT
  Age: 17 Year
  Sex: Male

DRUGS (4)
  1. VALPROIC ACID [Suspect]
     Indication: AFFECTIVE DISORDER
  2. OLANZAPINE [Suspect]
     Indication: AFFECTIVE DISORDER
  3. IMIPRAMINE [Suspect]
     Indication: AFFECTIVE DISORDER
  4. GUANIFACINE [Suspect]
     Indication: AFFECTIVE DISORDER

REACTIONS (8)
  - Brain oedema [Recovered/Resolved]
  - Toxicity to various agents [Recovered/Resolved]
  - Overdose [Recovered/Resolved]
  - Hyperammonaemia [Recovered/Resolved]
  - Haemodialysis [None]
  - Hypertension [None]
  - Pneumonia [None]
  - Neurotoxicity [None]
